FAERS Safety Report 10878889 (Version 1)
Quarter: 2015Q1

REPORT INFORMATION
  Report Type: Report from Study
  Country: US (occurrence: US)
  Receive Date: 20150302
  Receipt Date: 20150302
  Transmission Date: 20150721
  Serious: Yes (Hospitalization, Other)
  Sender: FDA-Public Use
  Company Number: US-RECKITT BENCKISER PHARMACEUTICAL, INC-RB-076243-2015

PATIENT
  Age: 44 Year
  Sex: Male

DRUGS (2)
  1. SUBOXONE [Suspect]
     Active Substance: BUPRENORPHINE HYDROCHLORIDE\NALOXONE HYDROCHLORIDE
     Indication: PAIN
     Dosage: 24 MG, QD
     Route: 060
     Dates: start: 200512
  2. SUBOXONE [Suspect]
     Active Substance: BUPRENORPHINE HYDROCHLORIDE\NALOXONE HYDROCHLORIDE
     Indication: PAIN
     Dosage: 24 MG DAILY
     Route: 060

REACTIONS (7)
  - Arthropathy [Recovered/Resolved]
  - Road traffic accident [Recovered/Resolved]
  - Off label use [Not Recovered/Not Resolved]
  - Lower limb fracture [Recovered/Resolved]
  - Staphylococcal infection [Recovered/Resolved]
  - Spinal pain [Not Recovered/Not Resolved]
  - Pain [Recovered/Resolved]

NARRATIVE: CASE EVENT DATE: 200512
